FAERS Safety Report 16779313 (Version 2)
Quarter: 2019Q3

REPORT INFORMATION
  Report Type: Spontaneous
  Country: US (occurrence: US)
  Receive Date: 20190906
  Receipt Date: 20190913
  Transmission Date: 20191005
  Serious: No
  Sender: FDA-Public Use
  Company Number: US-PFIZER INC-2019382381

PATIENT
  Age: 37 Year
  Sex: Male
  Weight: 89.81 kg

DRUGS (1)
  1. VIAGRA [Suspect]
     Active Substance: SILDENAFIL CITRATE
     Indication: ERECTILE DYSFUNCTION
     Dosage: 100 MG, WEEKLY (100 MG, 1 TABLET, 2-3 TIMES A WEEK OR MORE, BY MOUTH)
     Route: 048

REACTIONS (1)
  - Blood cholesterol abnormal [Unknown]
